FAERS Safety Report 7488968-0 (Version None)
Quarter: 2011Q1

REPORT INFORMATION
  Report Type: 
  Country: None (occurrence: None)
  Receive Date: 20110316
  Receipt Date: 20100507
  Transmission Date: 20110831
  Serious: Yes (Other)
  Sender: FDA-Public Use
  Company Number: 10-000694

PATIENT
  Age: 78 Year
  Sex: Female

DRUGS (3)
  1. ASPIRIN [Concomitant]
  2. CARVEDILOL [Concomitant]
  3. ESTRACE [Suspect]
     Indication: HORMONE REPLACEMENT THERAPY
     Dosage: 2 G, WEEKLY, VAGINAL
     Route: 067
     Dates: start: 20100502, end: 20100502

REACTIONS (3)
  - HEART RATE INCREASED [None]
  - HYPERSENSITIVITY [None]
  - BLOOD PRESSURE INCREASED [None]
